FAERS Safety Report 14706700 (Version 9)
Quarter: 2023Q2

REPORT INFORMATION
  Report Type: Report from Study
  Country: JP (occurrence: JP)
  Receive Date: 20180402
  Receipt Date: 20230421
  Transmission Date: 20230722
  Serious: Yes (Life-Threatening, Hospitalization, Other)
  Sender: FDA-Public Use
  Company Number: JP-SHIRE-JP201811496

PATIENT
  Age: 1 Year
  Sex: Male
  Weight: 5.9 kg

DRUGS (175)
  1. VELAGLUCERASE ALFA [Suspect]
     Active Substance: VELAGLUCERASE ALFA
     Indication: Gaucher^s disease type II
     Dosage: 400 INTERNATIONAL UNIT, Q2WEEKS
     Route: 042
     Dates: start: 20170420, end: 20170711
  2. VELAGLUCERASE ALFA [Suspect]
     Active Substance: VELAGLUCERASE ALFA
     Dosage: 800 INTERNATIONAL UNIT, Q2WEEKS
     Route: 042
     Dates: start: 20170725, end: 20180807
  3. VELAGLUCERASE ALFA [Suspect]
     Active Substance: VELAGLUCERASE ALFA
     Dosage: 1200 INTERNATIONAL UNIT, Q2WEEKS
     Route: 042
     Dates: start: 20180821, end: 20200723
  4. VELAGLUCERASE ALFA [Suspect]
     Active Substance: VELAGLUCERASE ALFA
     Dosage: 1600 INTERNATIONAL UNIT, Q2WEEKS
     Route: 042
     Dates: start: 20200806
  5. VELAGLUCERASE ALFA [Suspect]
     Active Substance: VELAGLUCERASE ALFA
     Dosage: 1200 INTERNATIONAL UNIT, SINGLE
     Route: 042
     Dates: start: 20191226, end: 20191226
  6. VELAGLUCERASE ALFA [Suspect]
     Active Substance: VELAGLUCERASE ALFA
     Dosage: 1600 INTERNATIONAL UNIT, SINGLE
     Route: 042
     Dates: start: 20201210, end: 20201210
  7. VELAGLUCERASE ALFA [Suspect]
     Active Substance: VELAGLUCERASE ALFA
     Dosage: 1600 INTERNATIONAL UNIT, SINGLE
     Route: 042
     Dates: start: 20210203, end: 20210203
  8. VELAGLUCERASE ALFA [Suspect]
     Active Substance: VELAGLUCERASE ALFA
     Dosage: 1600 INTERNATIONAL UNIT, SINGLE
     Route: 042
     Dates: start: 20210217, end: 20210217
  9. VELAGLUCERASE ALFA [Suspect]
     Active Substance: VELAGLUCERASE ALFA
     Dosage: 1600 INTERNATIONAL UNIT, SINGLE
     Route: 042
     Dates: start: 20220428, end: 20220428
  10. VALPROATE SODIUM [Concomitant]
     Active Substance: VALPROATE SODIUM
     Indication: Product used for unknown indication
     Dosage: UNK, UNKNOWN
     Route: 065
  11. CLONAZEPAM [Concomitant]
     Active Substance: CLONAZEPAM
     Indication: Product used for unknown indication
     Dosage: UNK, UNKNOWN
     Route: 065
  12. LEVETIRACETAM [Concomitant]
     Active Substance: LEVETIRACETAM
     Indication: Product used for unknown indication
     Dosage: UNK, UNKNOWN
     Route: 065
  13. DANTRIUM [Concomitant]
     Active Substance: DANTROLENE SODIUM
     Indication: Gaucher^s disease type II
     Dosage: 5 MILLIGRAM
     Route: 048
     Dates: end: 20171031
  14. DANTRIUM [Concomitant]
     Active Substance: DANTROLENE SODIUM
     Dosage: 10 MILLIGRAM
     Route: 048
     Dates: start: 20171031, end: 20180226
  15. DANTRIUM [Concomitant]
     Active Substance: DANTROLENE SODIUM
     Dosage: 12.5 MILLIGRAM
     Route: 048
     Dates: start: 20180226, end: 20180607
  16. DANTRIUM [Concomitant]
     Active Substance: DANTROLENE SODIUM
     Dosage: 16.7 MILLIGRAM
     Route: 048
     Dates: start: 20180607, end: 20180619
  17. DANTRIUM [Concomitant]
     Active Substance: DANTROLENE SODIUM
     Dosage: 20 MILLIGRAM
     Route: 048
     Dates: start: 20180619, end: 20181002
  18. DANTRIUM [Concomitant]
     Active Substance: DANTROLENE SODIUM
     Dosage: 25 MILLIGRAM
     Route: 048
     Dates: start: 20181002, end: 20190614
  19. DANTRIUM [Concomitant]
     Active Substance: DANTROLENE SODIUM
     Dosage: 37.5 MILLIGRAM
     Route: 048
     Dates: start: 20190614, end: 20200806
  20. DANTRIUM [Concomitant]
     Active Substance: DANTROLENE SODIUM
     Dosage: 50 MILLIGRAM
     Route: 048
     Dates: start: 20200806, end: 20201221
  21. DANTRIUM [Concomitant]
     Active Substance: DANTROLENE SODIUM
     Dosage: 50 MILLIGRAM
     Route: 048
     Dates: start: 20210103, end: 20210106
  22. DANTRIUM [Concomitant]
     Active Substance: DANTROLENE SODIUM
     Dosage: 50 MILLIGRAM
     Route: 048
     Dates: start: 20210113
  23. BACLOFEN [Concomitant]
     Active Substance: BACLOFEN
     Indication: Product used for unknown indication
     Dosage: UNK, UNKNOWN
     Route: 065
  24. PHENOBAL                           /00023201/ [Concomitant]
     Indication: Gaucher^s disease type II
     Dosage: 6 MILLILITER
     Route: 048
     Dates: end: 20180206
  25. PHENOBAL                           /00023201/ [Concomitant]
     Dosage: 9 MILLILITER
     Route: 048
     Dates: start: 20180206, end: 20180610
  26. PHENOBAL                           /00023201/ [Concomitant]
     Dosage: 12 MILLILITER
     Route: 048
     Dates: start: 20180610, end: 20180722
  27. PHENOBAL                           /00023201/ [Concomitant]
     Dosage: 20 MILLILITER
     Route: 048
     Dates: start: 20180722, end: 20181018
  28. PHENOBAL                           /00023201/ [Concomitant]
     Dosage: 24 MILLILITER
     Route: 048
     Dates: start: 20181018, end: 20181025
  29. PHENOBAL                           /00023201/ [Concomitant]
     Dosage: 26 MILLILITER
     Route: 048
     Dates: start: 20181025, end: 20181113
  30. PHENOBAL                           /00023201/ [Concomitant]
     Dosage: 30 MILLILITER
     Route: 048
     Dates: start: 20181113, end: 20190310
  31. PHENOBAL                           /00023201/ [Concomitant]
     Dosage: 24 MILLILITER
     Route: 048
     Dates: start: 20190310
  32. PHENOBAL                           /00023201/ [Concomitant]
     Dosage: 160 MILLIGRAM
     Route: 048
     Dates: start: 20210119, end: 20210401
  33. PHENOBAL                           /00023201/ [Concomitant]
     Dosage: 140 MILLIGRAM
     Route: 048
     Dates: start: 20210401, end: 20210430
  34. PHENOBAL                           /00023201/ [Concomitant]
     Dosage: 140 MILLIGRAM
     Route: 048
     Dates: start: 20210430
  35. ELIXIRMETHASONE [Concomitant]
     Indication: Gaucher^s disease type II
     Dosage: 6 MILLILITER
     Route: 048
  36. INCREMIN                           /00023544/ [Concomitant]
     Indication: Mineral supplementation
     Dosage: 3 MILLILITER
     Route: 048
  37. FAMOTIDINE [Concomitant]
     Active Substance: FAMOTIDINE
     Indication: Product used for unknown indication
     Dosage: 5 MILLIGRAM
     Route: 048
     Dates: end: 20180529
  38. FAMOTIDINE [Concomitant]
     Active Substance: FAMOTIDINE
     Dosage: 10 MILLIGRAM
     Route: 048
     Dates: start: 20180529, end: 20201217
  39. FAMOTIDINE [Concomitant]
     Active Substance: FAMOTIDINE
     Dosage: 20 MILLIGRAM
     Route: 048
     Dates: start: 20201217, end: 20201219
  40. FAMOTIDINE [Concomitant]
     Active Substance: FAMOTIDINE
     Dosage: 16 MILLIGRAM
     Route: 048
     Dates: start: 20210115
  41. MOSAPRIDE [Concomitant]
     Active Substance: MOSAPRIDE
     Indication: Product used for unknown indication
     Dosage: 1.5 MILLIGRAM
     Route: 048
     Dates: end: 20180529
  42. MOSAPRIDE [Concomitant]
     Active Substance: MOSAPRIDE
     Dosage: 5 MILLIGRAM
     Route: 048
     Dates: start: 20180529, end: 20201221
  43. GABAPENTIN [Concomitant]
     Active Substance: GABAPENTIN
     Indication: Gaucher^s disease type II
     Dosage: 300 MILLIGRAM
     Route: 048
  44. GABAPENTIN [Concomitant]
     Active Substance: GABAPENTIN
     Dosage: 350 MILLIGRAM
     Route: 048
     Dates: start: 20170711, end: 20170725
  45. GABAPENTIN [Concomitant]
     Active Substance: GABAPENTIN
     Dosage: 375 MILLIGRAM
     Route: 048
     Dates: start: 20170725, end: 20170822
  46. GABAPENTIN [Concomitant]
     Active Substance: GABAPENTIN
     Dosage: 400 MILLIGRAM
     Route: 048
     Dates: start: 20170822, end: 20171017
  47. GABAPENTIN [Concomitant]
     Active Substance: GABAPENTIN
     Dosage: 300 MILLIGRAM
     Route: 048
     Dates: start: 20171017, end: 20171212
  48. GABAPENTIN [Concomitant]
     Active Substance: GABAPENTIN
     Dosage: 200 MILLIGRAM
     Route: 048
     Dates: start: 20171212, end: 20171226
  49. GABAPENTIN [Concomitant]
     Active Substance: GABAPENTIN
     Dosage: 150 MILLIGRAM
     Route: 048
     Dates: start: 20171226, end: 20180702
  50. GABAPENTIN [Concomitant]
     Active Substance: GABAPENTIN
     Dosage: 100 MILLIGRAM
     Route: 048
     Dates: start: 20180702, end: 20181019
  51. MIYA-BM [Concomitant]
     Active Substance: CLOSTRIDIUM BUTYRICUM SPORES STRAIN M-55
     Indication: Product used for unknown indication
     Dosage: 0.6 GRAM
     Route: 048
  52. MIYA-BM [Concomitant]
     Active Substance: CLOSTRIDIUM BUTYRICUM SPORES STRAIN M-55
     Dosage: 1 GRAM
     Route: 048
     Dates: start: 20170711, end: 20190319
  53. MIYA-BM [Concomitant]
     Active Substance: CLOSTRIDIUM BUTYRICUM SPORES STRAIN M-55
     Dosage: 1.5 GRAM
     Route: 048
     Dates: start: 20190319, end: 20201221
  54. MIYA-BM [Concomitant]
     Active Substance: CLOSTRIDIUM BUTYRICUM SPORES STRAIN M-55
     Dosage: 2.1 GRAM
     Route: 048
     Dates: start: 20210102, end: 20210106
  55. MIYA-BM [Concomitant]
     Active Substance: CLOSTRIDIUM BUTYRICUM SPORES STRAIN M-55
     Dosage: 1.5 GRAM
     Route: 048
     Dates: start: 20210115, end: 20220331
  56. MIYA-BM [Concomitant]
     Active Substance: CLOSTRIDIUM BUTYRICUM SPORES STRAIN M-55
     Dosage: 2 GRAM
     Route: 048
     Dates: start: 20220331
  57. LEVOCARNITINE [Concomitant]
     Active Substance: LEVOCARNITINE
     Indication: Prophylaxis
     Dosage: 3 MILLILITER
     Route: 048
     Dates: start: 20171017, end: 20171031
  58. LEVOCARNITINE [Concomitant]
     Active Substance: LEVOCARNITINE
     Dosage: 6 MILLILITER
     Route: 048
     Dates: start: 20171031, end: 20201221
  59. LEVOCARNITINE [Concomitant]
     Active Substance: LEVOCARNITINE
     Dosage: 6 MILLILITER
     Route: 048
     Dates: start: 20210119, end: 20210125
  60. LEVOCARNITINE [Concomitant]
     Active Substance: LEVOCARNITINE
     Dosage: 6 MILLILITER
     Route: 048
     Dates: start: 20210204
  61. CARBIDOPA\LEVODOPA [Concomitant]
     Active Substance: CARBIDOPA\LEVODOPA
     Indication: Gaucher^s disease type II
     Dosage: 40 MILLIGRAM
     Route: 048
     Dates: start: 20170808, end: 20170905
  62. CARBIDOPA\LEVODOPA [Concomitant]
     Active Substance: CARBIDOPA\LEVODOPA
     Dosage: 60 MILLIGRAM
     Route: 048
     Dates: start: 20170905, end: 20180109
  63. CARBIDOPA\LEVODOPA [Concomitant]
     Active Substance: CARBIDOPA\LEVODOPA
     Dosage: 30 MILLIGRAM
     Route: 048
     Dates: start: 20180109, end: 20180123
  64. TIZANIDINE [Concomitant]
     Active Substance: TIZANIDINE
     Indication: Gaucher^s disease type II
     Dosage: 0.5 MILLIGRAM
     Route: 048
     Dates: start: 20170822, end: 20171003
  65. TIZANIDINE [Concomitant]
     Active Substance: TIZANIDINE
     Dosage: 1 MILLIGRAM
     Route: 048
     Dates: start: 20171003, end: 20171020
  66. TIZANIDINE [Concomitant]
     Active Substance: TIZANIDINE
     Dosage: 2 MILLIGRAM
     Route: 048
     Dates: start: 20171020, end: 20180724
  67. TIZANIDINE [Concomitant]
     Active Substance: TIZANIDINE
     Dosage: 3 MILLIGRAM
     Route: 048
     Dates: start: 20180724, end: 20181002
  68. TIZANIDINE [Concomitant]
     Active Substance: TIZANIDINE
     Dosage: 5 MILLIGRAM
     Route: 048
     Dates: start: 20181002, end: 20181018
  69. TIZANIDINE [Concomitant]
     Active Substance: TIZANIDINE
     Dosage: 7.5 MILLIGRAM
     Route: 048
     Dates: start: 20181018, end: 20190711
  70. TIZANIDINE [Concomitant]
     Active Substance: TIZANIDINE
     Dosage: 10 MILLIGRAM
     Route: 048
     Dates: start: 20190711, end: 20190809
  71. TIZANIDINE [Concomitant]
     Active Substance: TIZANIDINE
     Dosage: 11 MILLIGRAM
     Route: 048
     Dates: start: 20190809
  72. TIZANIDINE [Concomitant]
     Active Substance: TIZANIDINE
     Dosage: 13 MILLIGRAM
     Route: 048
     Dates: end: 20201221
  73. DEPAKENE                           /00228501/ [Concomitant]
     Indication: Gaucher^s disease type II
     Dosage: 2.4 MILLILITER
     Route: 048
     Dates: start: 20171003, end: 20171017
  74. DEPAKENE                           /00228501/ [Concomitant]
     Dosage: 3 MILLILITER
     Route: 048
     Dates: start: 20171017, end: 20171031
  75. DEPAKENE                           /00228501/ [Concomitant]
     Dosage: 4.5 MILLILITER
     Route: 048
     Dates: start: 20171031, end: 20171212
  76. DEPAKENE                           /00228501/ [Concomitant]
     Dosage: 3 MILLILITER
     Route: 048
     Dates: start: 20171212, end: 20180206
  77. DEPAKENE                           /00228501/ [Concomitant]
     Dosage: 2.4 MILLILITER
     Route: 048
     Dates: start: 20180206, end: 20180226
  78. DEPAKENE                           /00228501/ [Concomitant]
     Dosage: 3 MILLILITER
     Route: 048
     Dates: start: 20180226, end: 20180724
  79. DEPAKENE                           /00228501/ [Concomitant]
     Dosage: 6 MILLILITER
     Route: 048
     Dates: start: 20180724, end: 20190319
  80. DEPAKENE                           /00228501/ [Concomitant]
     Dosage: 8 MILLILITER
     Route: 048
     Dates: start: 20190319, end: 20190418
  81. DEPAKENE                           /00228501/ [Concomitant]
     Dosage: 9 MILLILITER
     Route: 048
     Dates: start: 20190418, end: 20190614
  82. DEPAKENE                           /00228501/ [Concomitant]
     Dosage: 10 MILLILITER
     Route: 048
     Dates: start: 20190614, end: 20191226
  83. DEPAKENE                           /00228501/ [Concomitant]
     Dosage: 12 MILLILITER
     Route: 048
     Dates: start: 20191226
  84. DEPAKENE                           /00228501/ [Concomitant]
     Dosage: 15 MILLILITER
     Route: 048
     Dates: end: 20201221
  85. BROMHEXINE [Concomitant]
     Active Substance: BROMHEXINE
     Indication: Gaucher^s disease type II
     Dosage: UNK MILLILITER
     Route: 050
  86. MEROPEN                            /01250501/ [Concomitant]
     Indication: Prophylaxis
     Dosage: 270 MILLIGRAM
     Route: 042
     Dates: start: 20171018
  87. FLUMARIN                           /00780601/ [Concomitant]
     Indication: Prophylaxis
     Dosage: 0.23 GRAM
     Route: 042
     Dates: start: 20171017, end: 20171017
  88. CERCINE [Concomitant]
     Active Substance: DIAZEPAM
     Indication: Gaucher^s disease type II
     Dosage: 3 MILLILITER
     Route: 048
     Dates: start: 20171102, end: 20180109
  89. CERCINE [Concomitant]
     Active Substance: DIAZEPAM
     Dosage: 3 MILLILITER
     Route: 048
     Dates: start: 20180403, end: 20180719
  90. CERCINE [Concomitant]
     Active Substance: DIAZEPAM
     Dosage: 9 MILLILITER
     Route: 048
     Dates: start: 20180719, end: 20181016
  91. CERCINE [Concomitant]
     Active Substance: DIAZEPAM
     Dosage: 15 MILLILITER
     Route: 048
     Dates: start: 20181016, end: 20201221
  92. CERCINE [Concomitant]
     Active Substance: DIAZEPAM
     Dosage: 15 MILLILITER
     Route: 048
     Dates: start: 20210103, end: 20210106
  93. RIVOTRIL [Concomitant]
     Active Substance: CLONAZEPAM
     Indication: Gaucher^s disease type II
     Dosage: 0.5 MILLIGRAM
     Route: 048
     Dates: start: 20171212, end: 20180220
  94. RIVOTRIL [Concomitant]
     Active Substance: CLONAZEPAM
     Dosage: 0.8 MILLIGRAM
     Route: 048
     Dates: start: 20180220, end: 20180529
  95. RIVOTRIL [Concomitant]
     Active Substance: CLONAZEPAM
     Dosage: 1 MILLIGRAM
     Route: 048
     Dates: start: 20180529, end: 20181018
  96. RIVOTRIL [Concomitant]
     Active Substance: CLONAZEPAM
     Dosage: 1.5 MILLIGRAM
     Route: 048
     Dates: start: 20181018, end: 20190310
  97. RIVOTRIL [Concomitant]
     Active Substance: CLONAZEPAM
     Dosage: 2 MILLIGRAM
     Route: 048
     Dates: start: 20190310, end: 20190614
  98. RIVOTRIL [Concomitant]
     Active Substance: CLONAZEPAM
     Dosage: 3 MILLIGRAM
     Route: 048
     Dates: start: 20190614, end: 20200221
  99. RIVOTRIL [Concomitant]
     Active Substance: CLONAZEPAM
     Dosage: 4 MILLIGRAM
     Route: 048
     Dates: start: 20200221
  100. RIVOTRIL [Concomitant]
     Active Substance: CLONAZEPAM
     Dosage: 4.5 MILLIGRAM
     Route: 048
     Dates: start: 20210103, end: 20210106
  101. RIVOTRIL [Concomitant]
     Active Substance: CLONAZEPAM
     Dosage: 4.5 MILLIGRAM
     Route: 048
     Dates: start: 20210113, end: 20210114
  102. RIVOTRIL [Concomitant]
     Active Substance: CLONAZEPAM
     Dosage: 6 MILLIGRAM
     Route: 048
     Dates: start: 20210114, end: 20211111
  103. RIVOTRIL [Concomitant]
     Active Substance: CLONAZEPAM
     Dosage: 5 MILLIGRAM
     Route: 048
     Dates: start: 20211111, end: 20211209
  104. RIVOTRIL [Concomitant]
     Active Substance: CLONAZEPAM
     Dosage: 4 MILLIGRAM
     Route: 048
     Dates: start: 20211209
  105. LIORESAL [Concomitant]
     Active Substance: BACLOFEN
     Indication: Gaucher^s disease type II
     Dosage: 2 MILLIGRAM
     Route: 048
     Dates: start: 20171212, end: 20180724
  106. LIORESAL [Concomitant]
     Active Substance: BACLOFEN
     Dosage: 3 MILLIGRAM
     Route: 048
     Dates: start: 20180724, end: 20181018
  107. LIORESAL [Concomitant]
     Active Substance: BACLOFEN
     Dosage: 5 MILLIGRAM
     Route: 048
     Dates: start: 20181018
  108. LIORESAL [Concomitant]
     Active Substance: BACLOFEN
     Dosage: 10 MILLIGRAM
     Route: 048
     Dates: start: 20181018, end: 20201221
  109. LIORESAL [Concomitant]
     Active Substance: BACLOFEN
     Dosage: 10 MILLIGRAM
     Route: 048
     Dates: start: 20210103, end: 20210106
  110. LIORESAL [Concomitant]
     Active Substance: BACLOFEN
     Dosage: 10 MILLIGRAM
     Route: 048
     Dates: start: 20210113
  111. CARBOCYSTEINE [Concomitant]
     Active Substance: CARBOCYSTEINE
     Indication: Gaucher^s disease type II
     Dosage: 300 MILLIGRAM
     Route: 048
     Dates: start: 20180109, end: 20190319
  112. CARBOCYSTEINE [Concomitant]
     Active Substance: CARBOCYSTEINE
     Dosage: 450 MILLIGRAM
     Route: 048
     Dates: start: 20190319
  113. CARBOCYSTEINE [Concomitant]
     Active Substance: CARBOCYSTEINE
     Dosage: 600 MILLIGRAM
     Route: 048
     Dates: end: 20201221
  114. LEVETIRACETAM [Concomitant]
     Active Substance: LEVETIRACETAM
     Indication: Gaucher^s disease type II
     Dosage: 200 MILLIGRAM
     Route: 048
     Dates: start: 20180302, end: 20180312
  115. LEVETIRACETAM [Concomitant]
     Active Substance: LEVETIRACETAM
     Dosage: 250 MILLIGRAM
     Route: 048
     Dates: start: 20180312, end: 20180529
  116. LEVETIRACETAM [Concomitant]
     Active Substance: LEVETIRACETAM
     Dosage: 400 MILLIGRAM
     Route: 048
     Dates: start: 20180529, end: 20180605
  117. LEVETIRACETAM [Concomitant]
     Active Substance: LEVETIRACETAM
     Dosage: 500 MILLIGRAM
     Route: 048
     Dates: start: 20180605, end: 20180724
  118. LEVETIRACETAM [Concomitant]
     Active Substance: LEVETIRACETAM
     Dosage: 600 MILLIGRAM
     Route: 048
     Dates: start: 20180724, end: 20181127
  119. LEVETIRACETAM [Concomitant]
     Active Substance: LEVETIRACETAM
     Dosage: 800 MILLIGRAM
     Route: 048
     Dates: start: 20181127, end: 20190108
  120. LEVETIRACETAM [Concomitant]
     Active Substance: LEVETIRACETAM
     Dosage: 900 MILLIGRAM
     Route: 048
     Dates: start: 20190108, end: 20191226
  121. LEVETIRACETAM [Concomitant]
     Active Substance: LEVETIRACETAM
     Dosage: 1000 MILLIGRAM
     Route: 048
     Dates: start: 20191226, end: 20200221
  122. LEVETIRACETAM [Concomitant]
     Active Substance: LEVETIRACETAM
     Dosage: 1200 MILLIGRAM
     Route: 048
     Dates: start: 20200221, end: 20200611
  123. LEVETIRACETAM [Concomitant]
     Active Substance: LEVETIRACETAM
     Dosage: 1400 MILLIGRAM
     Route: 048
     Dates: end: 20200119
  124. LEVETIRACETAM [Concomitant]
     Active Substance: LEVETIRACETAM
     Dosage: 1400 MILLIGRAM
     Route: 048
     Dates: start: 20210125
  125. FYCOMPA [Concomitant]
     Active Substance: PERAMPANEL
     Indication: Gaucher^s disease type II
     Dosage: 0.5 MILLIGRAM
     Route: 048
     Dates: start: 20180614, end: 20180702
  126. FYCOMPA [Concomitant]
     Active Substance: PERAMPANEL
     Dosage: 0.75 MILLIGRAM
     Route: 048
     Dates: start: 20180702, end: 20180724
  127. FYCOMPA [Concomitant]
     Active Substance: PERAMPANEL
     Dosage: 1 MILLIGRAM
     Route: 048
     Dates: start: 20180724, end: 20181002
  128. FYCOMPA [Concomitant]
     Active Substance: PERAMPANEL
     Dosage: 1.5 MILLIGRAM
     Route: 048
     Dates: start: 20181002, end: 20181019
  129. FYCOMPA [Concomitant]
     Active Substance: PERAMPANEL
     Dosage: 3 MILLIGRAM
     Route: 048
     Dates: start: 20181019, end: 20181120
  130. FYCOMPA [Concomitant]
     Active Substance: PERAMPANEL
     Dosage: 4 MILLIGRAM
     Route: 048
     Dates: start: 20181120, end: 20190108
  131. FYCOMPA [Concomitant]
     Active Substance: PERAMPANEL
     Dosage: 5 MILLIGRAM
     Route: 048
     Dates: start: 20190108, end: 20200129
  132. FYCOMPA [Concomitant]
     Active Substance: PERAMPANEL
     Dosage: 6 MILLIGRAM
     Route: 048
     Dates: start: 20200129
  133. FYCOMPA [Concomitant]
     Active Substance: PERAMPANEL
     Dosage: 8 MILLIGRAM
     Route: 048
     Dates: end: 20201220
  134. FYCOMPA [Concomitant]
     Active Substance: PERAMPANEL
     Dosage: 4 MILLIGRAM
     Route: 048
     Dates: start: 20210101, end: 20210103
  135. FYCOMPA [Concomitant]
     Active Substance: PERAMPANEL
     Dosage: 8 MILLIGRAM
     Route: 048
     Dates: start: 20210103
  136. PHENOBARBITAL SODIUM [Concomitant]
     Active Substance: PHENOBARBITAL SODIUM
     Indication: Gaucher^s disease type II
     Dosage: 250 MILLIGRAM
     Route: 042
     Dates: start: 20180601, end: 20180601
  137. PHENOBARBITAL SODIUM [Concomitant]
     Active Substance: PHENOBARBITAL SODIUM
     Dosage: 250 MILLIGRAM
     Route: 042
     Dates: start: 20180606, end: 20180606
  138. PHENOBARBITAL SODIUM [Concomitant]
     Active Substance: PHENOBARBITAL SODIUM
     Dosage: 200 MILLIGRAM
     Route: 042
     Dates: start: 20201222, end: 20201222
  139. PHENOBARBITAL SODIUM [Concomitant]
     Active Substance: PHENOBARBITAL SODIUM
     Dosage: 300 MILLIGRAM
     Route: 042
     Dates: start: 20201223, end: 20201223
  140. PHENOBARBITAL SODIUM [Concomitant]
     Active Substance: PHENOBARBITAL SODIUM
     Dosage: 400 MILLIGRAM
     Route: 042
     Dates: start: 20201224, end: 20201224
  141. PHENOBARBITAL SODIUM [Concomitant]
     Active Substance: PHENOBARBITAL SODIUM
     Dosage: 200 MILLIGRAM
     Route: 042
     Dates: start: 20201225, end: 20201225
  142. PHENOBARBITAL SODIUM [Concomitant]
     Active Substance: PHENOBARBITAL SODIUM
     Dosage: 200 MILLIGRAM
     Route: 042
     Dates: start: 20201227, end: 20201227
  143. PHENOBARBITAL SODIUM [Concomitant]
     Active Substance: PHENOBARBITAL SODIUM
     Dosage: 150 MILLIGRAM
     Route: 042
     Dates: start: 20201229, end: 20210102
  144. PHENOBARBITAL SODIUM [Concomitant]
     Active Substance: PHENOBARBITAL SODIUM
     Dosage: 160 MILLIGRAM
     Route: 042
     Dates: start: 20210103, end: 20210119
  145. PHENOBARBITAL SODIUM [Concomitant]
     Active Substance: PHENOBARBITAL SODIUM
     Dosage: 160 MILLIGRAM
     Route: 042
     Dates: start: 20210125, end: 20210203
  146. DEPAKENE [Concomitant]
     Active Substance: VALPROIC ACID
     Dosage: 750 MILLIGRAM
     Route: 048
     Dates: start: 20210115, end: 20210720
  147. DEPAKENE [Concomitant]
     Active Substance: VALPROIC ACID
     Dosage: 750 MILLIGRAM
     Route: 048
     Dates: start: 20210819, end: 20220106
  148. DEPAKENE [Concomitant]
     Active Substance: VALPROIC ACID
     Dosage: 800 MILLIGRAM
     Route: 048
     Dates: start: 20220106
  149. LEVOCARNITINE [Concomitant]
     Active Substance: LEVOCARNITINE
     Dosage: 600 MILLIGRAM
     Route: 042
     Dates: start: 20201221, end: 20210119
  150. LEVOCARNITINE [Concomitant]
     Active Substance: LEVOCARNITINE
     Dosage: 600 MILLIGRAM
     Route: 042
     Dates: start: 20210126, end: 20210203
  151. CERCINE [Concomitant]
     Active Substance: DIAZEPAM
     Dosage: 15 MILLIGRAM
     Route: 048
     Dates: start: 20210113, end: 20211209
  152. CERCINE [Concomitant]
     Active Substance: DIAZEPAM
     Dosage: 12 MILLIGRAM
     Route: 048
     Dates: start: 20211209
  153. PHENOBARBITAL [Concomitant]
     Active Substance: PHENOBARBITAL
     Dosage: 24 MILLILITER
     Route: 048
     Dates: end: 20190711
  154. PHENOBARBITAL [Concomitant]
     Active Substance: PHENOBARBITAL
     Dosage: 28 MILLILITER
     Route: 048
     Dates: start: 20190711, end: 20191016
  155. PHENOBARBITAL [Concomitant]
     Active Substance: PHENOBARBITAL
     Dosage: 26 MILLILITER
     Route: 048
     Dates: start: 20191016, end: 20201221
  156. ROZEREM [Concomitant]
     Active Substance: RAMELTEON
     Dosage: 1 MILLIGRAM
     Route: 048
     Dates: end: 20190614
  157. ROZEREM [Concomitant]
     Active Substance: RAMELTEON
     Dosage: 2 MILLIGRAM
     Route: 048
     Dates: start: 20190614, end: 20190809
  158. ROZEREM [Concomitant]
     Active Substance: RAMELTEON
     Dosage: 3 MILLIGRAM
     Route: 048
     Dates: start: 20190809, end: 20201220
  159. HERBALS\MINERALS\VITAMINS [Concomitant]
     Active Substance: HERBALS\MINERALS\VITAMINS
     Dosage: 12 MILLILITER
     Route: 048
     Dates: start: 20190711, end: 20190809
  160. HERBALS\MINERALS\VITAMINS [Concomitant]
     Active Substance: HERBALS\MINERALS\VITAMINS
     Dosage: 15 MILLILITER
     Route: 048
     Dates: start: 20190809
  161. HERBALS\MINERALS\VITAMINS [Concomitant]
     Active Substance: HERBALS\MINERALS\VITAMINS
     Dosage: 18 MILLILITER
     Route: 048
     Dates: end: 20201220
  162. HERBALS\MINERALS\VITAMINS [Concomitant]
     Active Substance: HERBALS\MINERALS\VITAMINS
     Dosage: 4 MILLILITER
     Route: 048
     Dates: start: 20210101, end: 20210103
  163. HERBALS\MINERALS\VITAMINS [Concomitant]
     Active Substance: HERBALS\MINERALS\VITAMINS
     Dosage: 18 MILLILITER
     Route: 048
     Dates: start: 20210103, end: 20210106
  164. HERBALS\MINERALS\VITAMINS [Concomitant]
     Active Substance: HERBALS\MINERALS\VITAMINS
     Dosage: 18 MILLILITER
     Route: 048
     Dates: start: 20210128, end: 20211209
  165. HERBALS\MINERALS\VITAMINS [Concomitant]
     Active Substance: HERBALS\MINERALS\VITAMINS
     Dosage: 15 MILLILITER
     Route: 048
     Dates: start: 20211209
  166. AMOXICILLIN\CLAVULANATE POTASSIUM [Concomitant]
     Active Substance: AMOXICILLIN\CLAVULANATE POTASSIUM
     Dosage: 3.03 GRAM
     Route: 048
     Dates: start: 20191008, end: 20191012
  167. CEFMETAZOLE [Concomitant]
     Active Substance: CEFMETAZOLE
     Dosage: 1800 MILLIGRAM
     Route: 042
     Dates: start: 20191007, end: 20191008
  168. CEFMETAZOLE [Concomitant]
     Active Substance: CEFMETAZOLE
     Dosage: 1500 MILLIGRAM
     Route: 042
     Dates: start: 20200124, end: 20200125
  169. TIZANIDINE [Concomitant]
     Active Substance: TIZANIDINE
     Dosage: 2 MILLIGRAM
     Route: 048
     Dates: start: 20210101, end: 20210103
  170. TIZANIDINE [Concomitant]
     Active Substance: TIZANIDINE
     Dosage: 8 MILLIGRAM
     Route: 048
     Dates: start: 20210103, end: 20210106
  171. TIZANIDINE [Concomitant]
     Active Substance: TIZANIDINE
     Dosage: 8 MILLIGRAM
     Route: 048
     Dates: start: 20210113, end: 20210128
  172. TIZANIDINE [Concomitant]
     Active Substance: TIZANIDINE
     Dosage: 12 MILLIGRAM
     Route: 048
     Dates: start: 20210128, end: 20211209
  173. TIZANIDINE [Concomitant]
     Active Substance: TIZANIDINE
     Dosage: 10 MILLIGRAM
     Route: 048
     Dates: start: 20211209
  174. CEFAZOLIN SODIUM [Concomitant]
     Active Substance: CEFAZOLIN SODIUM
     Dosage: 2250 MILLIGRAM
     Route: 042
     Dates: start: 20201218, end: 20201218
  175. VALPROATE SODIUM [Concomitant]
     Active Substance: VALPROATE SODIUM
     Dosage: 750 MILLIGRAM
     Route: 048
     Dates: start: 20210720, end: 20210819

REACTIONS (19)
  - Peritonitis [Recovered/Resolved with Sequelae]
  - Colitis ischaemic [Recovered/Resolved with Sequelae]
  - Gastroenteritis eosinophilic [Recovering/Resolving]
  - Cardiac failure congestive [Recovering/Resolving]
  - Pneumonia [Recovering/Resolving]
  - Pneumonia [Recovering/Resolving]
  - Pneumonia [Recovering/Resolving]
  - Pneumonia [Recovering/Resolving]
  - Cytomegalovirus infection [Recovered/Resolved]
  - Hepatic function abnormal [Recovered/Resolved]
  - Diarrhoea [Not Recovered/Not Resolved]
  - Sleep disorder [Recovering/Resolving]
  - Anal fistula [Not Recovered/Not Resolved]
  - Urinary tract infection [Recovered/Resolved]
  - Urinary tract infection [Recovered/Resolved]
  - Otitis media acute [Recovered/Resolved]
  - Selenium deficiency [Recovering/Resolving]
  - Zinc deficiency [Recovering/Resolving]
  - Product use issue [Recovered/Resolved]

NARRATIVE: CASE EVENT DATE: 20171212
